FAERS Safety Report 16204404 (Version 2)
Quarter: 2019Q2

REPORT INFORMATION
  Report Type: Report from Study
  Country: US (occurrence: US)
  Receive Date: 20190416
  Receipt Date: 20190607
  Transmission Date: 20190711
  Serious: Yes (Death, Hospitalization)
  Sender: FDA-Public Use
  Company Number: PHEH2019US016196

PATIENT
  Sex: Male

DRUGS (1)
  1. HYCAMTIN [Suspect]
     Active Substance: TOPOTECAN HYDROCHLORIDE
     Indication: SMALL CELL LUNG CANCER
     Dosage: 2.3 MG/M2, QD (5MG/DAY)
     Route: 048
     Dates: start: 20180601, end: 20180928

REACTIONS (8)
  - Blood pressure decreased [Unknown]
  - Chronic obstructive pulmonary disease [Fatal]
  - Pyrexia [Fatal]
  - Small cell lung cancer extensive stage [Fatal]
  - Asthenia [Fatal]
  - Malaise [Fatal]
  - Urine output decreased [Unknown]
  - Dyspnoea [Fatal]
